FAERS Safety Report 6020628-5 (Version None)
Quarter: 2008Q4

REPORT INFORMATION
  Report Type: 
  Country: None (occurrence: None)
  Receive Date: 20081224
  Receipt Date: 20081224
  Transmission Date: 20090506
  Serious: No
  Sender: FDA-Public Use
  Company Number: None

PATIENT
  Age: 69 Year
  Sex: Female

DRUGS (1)
  1. ISOSORBIDE ER 60MG, ETHEX CORPORATION [Suspect]
     Indication: HYPERTENSION
     Dates: start: 20080901, end: 20081201

REACTIONS (4)
  - DYSPNOEA [None]
  - FATIGUE [None]
  - OVERDOSE [None]
  - PRODUCT QUALITY ISSUE [None]
